FAERS Safety Report 8682296 (Version 3)
Quarter: 2012Q4

REPORT INFORMATION
  Report Type: 
  Country: JP (occurrence: JP)
  Receive Date: 20120725
  Receipt Date: 20121003
  Transmission Date: 20130627
  Serious: Yes (Other)
  Sender: FDA-Public Use
  Company Number: JP-B.I. PHARMACEUTICALS,INC./RIDGEFIELD-2012-BP-16399YA

PATIENT
  Sex: Male

DRUGS (2)
  1. HARNAL [Suspect]
     Route: 048
  2. CARDIOVASCULAR MEDICATIONS [Concomitant]
     Indication: CARDIOVASCULAR DISORDER

REACTIONS (1)
  - Delirium [Recovered/Resolved]
